FAERS Safety Report 25357619 (Version 1)
Quarter: 2025Q2

REPORT INFORMATION
  Report Type: Spontaneous
  Country: JP (occurrence: JP)
  Receive Date: 20250526
  Receipt Date: 20250526
  Transmission Date: 20250717
  Serious: Yes (Hospitalization, Other)
  Sender: VIIV
  Company Number: JP-ViiV Healthcare-98331

PATIENT

DRUGS (1)
  1. TIVICAY [Suspect]
     Active Substance: DOLUTEGRAVIR SODIUM

REACTIONS (3)
  - Anal cancer [Unknown]
  - Therapy cessation [Unknown]
  - Treatment noncompliance [Unknown]
